FAERS Safety Report 5000497-2 (Version None)
Quarter: 2006Q2

REPORT INFORMATION
  Report Type: 
  Country: None (occurrence: None)
  Receive Date: 20060512
  Receipt Date: 20060505
  Transmission Date: 20061013
  Serious: Yes (Death, Life-Threatening, Hospitalization, Other)
  Sender: FDA-Public Use
  Company Number: NSADSS2002018092

PATIENT
  Sex: Male
  Weight: 74 kg

DRUGS (12)
  1. REMICADE [Suspect]
     Route: 041
     Dates: start: 20011024
  2. REMICADE [Suspect]
     Route: 041
     Dates: start: 20011024
  3. REMICADE [Suspect]
     Indication: CROHN'S DISEASE
     Route: 041
     Dates: start: 20011024
  4. IMURAN [Suspect]
     Indication: CROHN'S DISEASE
     Route: 048
  5. 6-MP [Concomitant]
     Indication: DRUG USE FOR UNKNOWN INDICATION
     Route: 065
  6. STEROID, NOS [Concomitant]
     Indication: DRUG USE FOR UNKNOWN INDICATION
     Route: 065
  7. IRON [Concomitant]
     Route: 065
  8. CALCIUM GLUCONATE [Concomitant]
     Route: 065
  9. PREDNISONE TAB [Concomitant]
  10. PREDNISONE TAB [Concomitant]
  11. ENTOCORT [Concomitant]
  12. ENTOCORT [Concomitant]

REACTIONS (1)
  - T-CELL LYMPHOMA [None]
